FAERS Safety Report 13819047 (Version 2)
Quarter: 2018Q1

REPORT INFORMATION
  Report Type: Report from Study
  Country: US (occurrence: US)
  Receive Date: 20170731
  Receipt Date: 20180201
  Transmission Date: 20180508
  Serious: No
  Sender: FDA-Public Use
  Company Number: US-EXELIXIS-CABO-17009128

PATIENT
  Sex: Male

DRUGS (8)
  1. AMLODIPINE [Concomitant]
     Active Substance: AMLODIPINE BESYLATE
  2. CABOMETYX [Suspect]
     Active Substance: CABOZANTINIB S-MALATE
     Indication: RENAL CANCER
     Dosage: 60 MG, QD
     Route: 048
     Dates: start: 20160723
  3. MULTIVITAMINS [Concomitant]
     Active Substance: VITAMINS
  4. DOCUSATE SODIUM. [Concomitant]
     Active Substance: DOCUSATE SODIUM
  5. GABAPENTIN. [Concomitant]
     Active Substance: GABAPENTIN
  6. MORPHINE SULFATE. [Concomitant]
     Active Substance: MORPHINE SULFATE
  7. OXYCODONE [Concomitant]
     Active Substance: OXYCODONE
  8. LASIVASINE [Concomitant]

REACTIONS (2)
  - Drug dose omission [Unknown]
  - Abdominal discomfort [Recovered/Resolved]
